FAERS Safety Report 6371090-4 (Version None)
Quarter: 2009Q3

REPORT INFORMATION
  Report Type: 
  Country: None (occurrence: None)
  Receive Date: 20090923
  Receipt Date: 20090914
  Transmission Date: 20100115
  Serious: Yes (Hospitalization, Other)
  Sender: FDA-Public Use
  Company Number: PHEH2008US07395

PATIENT
  Sex: Male

DRUGS (2)
  1. ZOMETA [Suspect]
     Dosage: UNK, UNK
     Route: 042
     Dates: end: 20060101
  2. RADIATION THERAPY [Concomitant]

REACTIONS (37)
  - ACTIVITIES OF DAILY LIVING IMPAIRED [None]
  - ANHEDONIA [None]
  - ANXIETY [None]
  - ATRIAL FIBRILLATION [None]
  - BACK PAIN [None]
  - BALANCE DISORDER [None]
  - CHOLECYSTECTOMY [None]
  - CHOLECYSTITIS INFECTIVE [None]
  - COMPRESSION FRACTURE [None]
  - CONSTIPATION [None]
  - DEBRIDEMENT [None]
  - DIARRHOEA [None]
  - DYSGEUSIA [None]
  - FALL [None]
  - FATIGUE [None]
  - FEBRILE NEUTROPENIA [None]
  - GINGIVAL PAIN [None]
  - IMPAIRED HEALING [None]
  - IMPAIRED WORK ABILITY [None]
  - INFECTION [None]
  - INJURY [None]
  - LASER THERAPY [None]
  - MASTICATION DISORDER [None]
  - NAUSEA [None]
  - OSTEONECROSIS [None]
  - PAIN [None]
  - PAIN IN JAW [None]
  - PARAESTHESIA [None]
  - PLASMACYTOMA [None]
  - SICK SINUS SYNDROME [None]
  - STEM CELL TRANSPLANT [None]
  - TOOTH EXTRACTION [None]
  - TOOTHACHE [None]
  - VERTEBROPLASTY [None]
  - VISUAL IMPAIRMENT [None]
  - VOMITING [None]
  - WEIGHT INCREASED [None]
